FAERS Safety Report 5836487-7 (Version None)
Quarter: 2008Q3

REPORT INFORMATION
  Report Type: 
  Country: None (occurrence: None)
  Receive Date: 20080807
  Receipt Date: 20080801
  Transmission Date: 20090109
  Serious: Yes (Other)
  Sender: FDA-Public Use
  Company Number: PHEH2008US06846

PATIENT
  Sex: Female

DRUGS (2)
  1. TEGRETOL [Suspect]
  2. ZONEGRAN [Suspect]

REACTIONS (1)
  - CONVULSION [None]
